FAERS Safety Report 12327887 (Version 2)
Quarter: 2016Q2

REPORT INFORMATION
  Report Type: Spontaneous
  Country: FR (occurrence: FR)
  Receive Date: 20160503
  Receipt Date: 20160527
  Transmission Date: 20160815
  Serious: Yes (Death, Other)
  Sender: FDA-Public Use
  Company Number: FR-MYLANLABS-2016M1018155

PATIENT

DRUGS (7)
  1. CLOZAPINE. [Suspect]
     Active Substance: CLOZAPINE
     Indication: SCHIZOPHRENIA
     Dosage: 800 MG, QD
     Route: 048
     Dates: start: 20080131, end: 20150611
  2. CLOZAPINE. [Suspect]
     Active Substance: CLOZAPINE
     Dosage: UNK
     Route: 048
     Dates: start: 20150327, end: 20150611
  3. VALPROATE [Suspect]
     Active Substance: VALPROIC ACID
     Indication: SEIZURE
     Dosage: 2 G, QD
     Route: 048
     Dates: start: 20140311, end: 20140912
  4. DIVALPROEX SODIUM. [Suspect]
     Active Substance: DIVALPROEX SODIUM
     Indication: SEIZURE
     Dosage: 2.5 G, QD
     Route: 048
     Dates: start: 20150605, end: 20150612
  5. ABILIFY [Suspect]
     Active Substance: ARIPIPRAZOLE
     Indication: SCHIZOPHRENIA
     Dosage: 15 MG, QD
     Route: 048
  6. VALPROATE [Suspect]
     Active Substance: VALPROIC ACID
     Dosage: 2.5 G, QD
     Route: 048
     Dates: start: 20140912, end: 20150505
  7. ABILIFY [Suspect]
     Active Substance: ARIPIPRAZOLE
     Dosage: 20 MG, QD
     Route: 048
     Dates: start: 20140310, end: 20150612

REACTIONS (2)
  - Septic shock [Fatal]
  - Anaplastic large-cell lymphoma [Fatal]

NARRATIVE: CASE EVENT DATE: 201504
